FAERS Safety Report 4591324-6 (Version None)
Quarter: 2005Q1

REPORT INFORMATION
  Report Type: 
  Country: None (occurrence: None)
  Receive Date: 20050225
  Receipt Date: 20050221
  Transmission Date: 20050727
  Serious: Yes (Disabling)
  Sender: FDA-Public Use
  Company Number: PHBS2005FI02555

PATIENT
  Age: 46 Year
  Sex: Male

DRUGS (3)
  1. DIOVAN [Suspect]
     Dosage: 80 MG, QD
     Dates: start: 20031201
  2. PRIMASPAN [Concomitant]
     Indication: CARDIOVASCULAR DISORDER
     Dosage: 100 MG, QD
     Dates: start: 20031201
  3. PRAVACHOL [Concomitant]
     Indication: CARDIOVASCULAR DISORDER
     Dosage: 40 MG, QD
     Dates: start: 20031201

REACTIONS (2)
  - COGNITIVE DISORDER [None]
  - FATIGUE [None]
